FAERS Safety Report 9062721 (Version 1)
Quarter: 2013Q1

REPORT INFORMATION
  Report Type: Report from Study
  Country: US (occurrence: US)
  Receive Date: 20130128
  Receipt Date: 20130128
  Transmission Date: 20140127
  Serious: No
  Sender: FDA-Public Use
  Company Number: US-ABBOTT-12P-163-0916840-00

PATIENT
  Age: 77 Year
  Sex: Male

DRUGS (9)
  1. HUMIRA 40 MG/0.8 ML PEN [Suspect]
     Indication: PSORIATIC ARTHROPATHY
     Dates: start: 2010, end: 201201
  2. HUMIRA 40 MG/0.8 ML PEN [Suspect]
     Dates: start: 201101
  3. CELEBREX [Concomitant]
     Indication: ARTHRITIS
  4. GENERIC THYROID [Concomitant]
     Indication: HYPOTHYROIDISM
  5. DULERA [Concomitant]
     Indication: PRODUCT USED FOR UNKNOWN INDICATION
     Dosage: INHALER
  6. SILVER MEN^S MULTIVITAMIN [Concomitant]
     Indication: PRODUCT USED FOR UNKNOWN INDICATION
  7. GLUCOSAMINE [Concomitant]
     Indication: PRODUCT USED FOR UNKNOWN INDICATION
  8. BAUSH + LOMB VITAMINS [Concomitant]
     Indication: EYE DISORDER
  9. METHOTREXATE [Concomitant]
     Indication: PRODUCT USED FOR UNKNOWN INDICATION
     Dates: end: 201101

REACTIONS (7)
  - Injection site pain [Recovered/Resolved]
  - Injection site pain [Recovered/Resolved]
  - Product quality issue [Recovered/Resolved]
  - Injection site pain [Recovered/Resolved]
  - Wrong technique in drug usage process [Recovered/Resolved]
  - Incorrect dose administered [Recovered/Resolved]
  - Arthralgia [Recovered/Resolved]
